FAERS Safety Report 9719176 (Version 2)
Quarter: 2014Q1

REPORT INFORMATION
  Report Type: Spontaneous
  Country: DE (occurrence: DE)
  Receive Date: 20131127
  Receipt Date: 20140203
  Transmission Date: 20141002
  Serious: No
  Sender: FDA-Public Use
  Company Number: PHHY2013DE135441

PATIENT
  Sex: Male
  Weight: 58 kg

DRUGS (9)
  1. CICLOSPORIN [Suspect]
     Indication: INTERMEDIATE UVEITIS
     Dosage: 100 MG, BID
     Dates: start: 20130712, end: 20131021
  2. RIVOTRIL [Concomitant]
     Dosage: 0.5 MG, TID
     Dates: start: 2005
  3. NORSPAN [Concomitant]
     Dosage: 10 UG, WEEKLY
     Dates: start: 20121130
  4. MACROGOL [Concomitant]
  5. METOHEXAL [Concomitant]
     Dosage: 1 DF, QD
     Dates: start: 20120322
  6. PREDNISOLONE [Concomitant]
     Dosage: 20 MG, QD
     Dates: start: 20121031
  7. VIGANTOLETTEN [Concomitant]
     Dosage: 1000 OT, QD
     Dates: start: 201306
  8. ACTRAPID [Concomitant]
  9. PROTAPHANE [Concomitant]

REACTIONS (4)
  - Intermediate uveitis [Recovered/Resolved]
  - Condition aggravated [Recovered/Resolved]
  - Lenticular opacities [Not Recovered/Not Resolved]
  - Drug ineffective [Unknown]
